FAERS Safety Report 5413518-X (Version None)
Quarter: 2007Q3

REPORT INFORMATION
  Report Type: 
  Country: None (occurrence: None)
  Receive Date: 20070814
  Receipt Date: 20070806
  Transmission Date: 20080115
  Serious: Yes (Other)
  Sender: FDA-Public Use
  Company Number: JP-AVENTIS-200712038JP

PATIENT
  Age: 64 Year
  Sex: Male

DRUGS (2)
  1. LASIX [Suspect]
     Route: 051
     Dates: start: 20070622, end: 20070705
  2. FAMOTIDINE [Suspect]

REACTIONS (2)
  - ALTERED STATE OF CONSCIOUSNESS [None]
  - DELIRIUM [None]
